FAERS Safety Report 18025230 (Version 2)
Quarter: 2020Q3

REPORT INFORMATION
  Report Type: Spontaneous
  Country: CO (occurrence: CO)
  Receive Date: 20200715
  Receipt Date: 20200806
  Transmission Date: 20201103
  Serious: Yes (Life-Threatening, Other)
  Sender: FDA-Public Use
  Company Number: CO-PFIZER INC-2020269589

PATIENT
  Age: 68 Year
  Sex: Female

DRUGS (2)
  1. REAMPLA [Suspect]
     Active Substance: PALBOCICLIB
     Dosage: 100 MG
     Route: 048
     Dates: start: 2020
  2. REAMPLA [Suspect]
     Active Substance: PALBOCICLIB
     Indication: BREAST CANCER
     Dosage: 125 MG
     Route: 048
     Dates: start: 202003

REACTIONS (6)
  - Second primary malignancy [Unknown]
  - Peritonitis [Unknown]
  - Ovarian neoplasm [Unknown]
  - Decreased immune responsiveness [Unknown]
  - Pyrexia [Unknown]
  - Neoplasm progression [Unknown]

NARRATIVE: CASE EVENT DATE: 2020
